FAERS Safety Report 9000664 (Version 1)
Quarter: 2013Q1

REPORT INFORMATION
  Report Type: Spontaneous
  Country: US (occurrence: US)
  Receive Date: 20130107
  Receipt Date: 20130107
  Transmission Date: 20140127
  Serious: No
  Sender: FDA-Public Use
  Company Number: US-PFIZER INC-2013005654

PATIENT
  Age: 79 Year
  Sex: Female
  Weight: 61.22 kg

DRUGS (1)
  1. NORVASC [Suspect]
     Indication: HYPERTENSION
     Dosage: UNK, DAILY
     Dates: start: 2007, end: 201212

REACTIONS (2)
  - Cough [Recovered/Resolved]
  - Insomnia [Recovered/Resolved]
